FAERS Safety Report 8366973-X (Version None)
Quarter: 2012Q2

REPORT INFORMATION
  Report Type: 
  Country: None (occurrence: None)
  Receive Date: 20120517
  Receipt Date: 20120510
  Transmission Date: 20120825
  Serious: Yes (Other)
  Sender: FDA-Public Use
  Company Number: PHHY2012DE038705

PATIENT
  Sex: Male

DRUGS (7)
  1. PLAVIX [Concomitant]
     Dosage: 75 MG, UNK
     Route: 048
  2. ASPIRIN [Concomitant]
     Dosage: 100 MG, UNK
     Route: 048
  3. ATORVASTATIN CALCIUM [Concomitant]
     Dosage: 20 MG, UNK
     Route: 048
  4. RASILEZ [Suspect]
     Dosage: 150 MG, UNK
     Route: 048
     Dates: end: 20110101
  5. EZETIMIBE [Concomitant]
     Dosage: 10 MG, UNK
     Route: 048
  6. NEBIVOLOL [Concomitant]
     Dosage: 5 MG, UNK
     Route: 048
  7. RASILEZ HCT [Suspect]
     Dosage: 300/25 MG
     Route: 048
     Dates: start: 20110101

REACTIONS (5)
  - PAIN IN EXTREMITY [None]
  - BURNING SENSATION [None]
  - POLYNEUROPATHY [None]
  - FEELING HOT [None]
  - FEELING ABNORMAL [None]
